FAERS Safety Report 8078171-8 (Version None)
Quarter: 2012Q1

REPORT INFORMATION
  Report Type: 
  Country: None (occurrence: None)
  Receive Date: 20120127
  Receipt Date: 20111007
  Transmission Date: 20120608
  Serious: No
  Sender: FDA-Public Use
  Company Number: US-BAUSCH-2011BL006833

PATIENT
  Sex: Female

DRUGS (2)
  1. ZYLET [Suspect]
     Indication: CONJUNCTIVITIS
     Route: 047
     Dates: start: 20110829
  2. ZYLET [Suspect]
     Route: 047
     Dates: end: 20110930

REACTIONS (2)
  - EYELID OEDEMA [None]
  - EYELID PTOSIS [None]
